FAERS Safety Report 16777601 (Version 1)
Quarter: 2019Q3

REPORT INFORMATION
  Report Type: Report from Study
  Country: AU (occurrence: AU)
  Receive Date: 20190905
  Receipt Date: 20190905
  Transmission Date: 20191005
  Serious: Yes (Other)
  Sender: FDA-Public Use
  Company Number: AU-JNJFOC-20190542748

PATIENT
  Age: 85 Year
  Sex: Female
  Weight: 54 kg

DRUGS (11)
  1. NILSTAT                            /00036501/ [Concomitant]
  2. PREDNISONE. [Concomitant]
     Active Substance: PREDNISONE
     Dosage: D1-D5 EVERY CYCLE
  3. STELARA [Suspect]
     Active Substance: USTEKINUMAB
     Indication: CROHN^S DISEASE
     Route: 058
  4. SODIBIC [Concomitant]
  5. VALTREX [Concomitant]
     Active Substance: VALACYCLOVIR HYDROCHLORIDE
     Dosage: DAILY
     Route: 065
  6. MIRTAZAPINE. [Concomitant]
     Active Substance: MIRTAZAPINE
     Dosage: ONCE EVERY NIGHT
  7. PANTOPRAZOLE [Concomitant]
     Active Substance: PANTOPRAZOLE
     Dosage: BID
  8. BACTRIM [Concomitant]
     Active Substance: SULFAMETHOXAZOLE\TRIMETHOPRIM
     Dosage: D5, 1 IN M/T
  9. METHOTREXATE. [Concomitant]
     Active Substance: METHOTREXATE
     Route: 065
  10. COLOXYL WITH SENNA [Concomitant]
     Active Substance: DOCUSATE\SENNOSIDES
     Dosage: 2 BD
  11. MAGNIL [Concomitant]
     Dosage: 2 TABLETS BD

REACTIONS (3)
  - Squamous cell carcinoma [Recovered/Resolved]
  - Crohn^s disease [Unknown]
  - Off label use [Unknown]
